FAERS Safety Report 7792454-8 (Version None)
Quarter: 2011Q3

REPORT INFORMATION
  Report Type: 
  Country: None (occurrence: None)
  Receive Date: 20110930
  Receipt Date: 20110930
  Transmission Date: 20111222
  Serious: Yes (Life-Threatening, Hospitalization)
  Sender: FDA-Public Use
  Company Number: None

PATIENT
  Age: 62 Year
  Sex: Female
  Weight: 64.8644 kg

DRUGS (3)
  1. MORPHINE SULFATE [Suspect]
     Indication: ARTHRALGIA
     Dosage: 60 MG 2X DAILY ORAL
     Route: 048
  2. MORPHINE SULFATE [Suspect]
     Indication: DEVICE BREAKAGE
     Dosage: 60 MG 2X DAILY ORAL
     Route: 048
  3. MORPHINE SULFATE [Suspect]
     Indication: ARTHROPATHY
     Dosage: 60 MG 2X DAILY ORAL
     Route: 048

REACTIONS (4)
  - PRODUCT SUBSTITUTION ISSUE [None]
  - ABSCESS [None]
  - INTESTINAL OBSTRUCTION [None]
  - CONSTIPATION [None]
